FAERS Safety Report 16744420 (Version 1)
Quarter: 2019Q3

REPORT INFORMATION
  Report Type: Spontaneous
  Country: GB (occurrence: GB)
  Receive Date: 20190827
  Receipt Date: 20190827
  Transmission Date: 20191005
  Serious: Yes (Hospitalization, Other)
  Sender: FDA-Public Use
  Company Number: GB-AUROBINDO-AUR-APL-2019-056322

PATIENT

DRUGS (11)
  1. RIBAVIRIN CAPSULE [Suspect]
     Active Substance: RIBAVIRIN
     Dosage: 800 MILLIGRAM, DAILY
     Route: 048
     Dates: start: 2016
  2. RIBAVIRIN CAPSULE [Suspect]
     Active Substance: RIBAVIRIN
     Indication: HEPATITIS E
     Dosage: 400 MILLIGRAM, DAILY
     Route: 065
  3. PREDNISOLONE. [Suspect]
     Active Substance: PREDNISOLONE
     Indication: EXTRANODAL MARGINAL ZONE B-CELL LYMPHOMA (MALT TYPE)
     Route: 065
  4. PEGASYS [Suspect]
     Active Substance: PEGINTERFERON ALFA-2A
     Indication: HEPATITIS E
     Dosage: 180 MICROGRAM, EVERY WEEK
     Route: 065
  5. DOXORUBICIN [Suspect]
     Active Substance: DOXORUBICIN
     Indication: EXTRANODAL MARGINAL ZONE B-CELL LYMPHOMA (MALT TYPE)
     Dosage: UNK
     Route: 065
  6. RIBAVIRIN CAPSULE [Suspect]
     Active Substance: RIBAVIRIN
     Dosage: 400 MILLIGRAM, DAILY
     Route: 065
  7. VINCRISTINE [Suspect]
     Active Substance: VINCRISTINE
     Indication: EXTRANODAL MARGINAL ZONE B-CELL LYMPHOMA (MALT TYPE)
     Dosage: UNK
     Route: 065
  8. RITUXIMAB. [Suspect]
     Active Substance: RITUXIMAB
     Indication: EXTRANODAL MARGINAL ZONE B-CELL LYMPHOMA (MALT TYPE)
     Dosage: UNK
     Route: 065
  9. RIBAVIRIN CAPSULE [Suspect]
     Active Substance: RIBAVIRIN
     Dosage: 800 MILLIGRAM, DAILY
     Route: 048
     Dates: start: 2016
  10. RIBAVIRIN CAPSULE [Suspect]
     Active Substance: RIBAVIRIN
     Dosage: 800 MILLIGRAM, DAILY
     Route: 048
  11. CYCLOPHOSPHAMIDE. [Suspect]
     Active Substance: CYCLOPHOSPHAMIDE
     Indication: EXTRANODAL MARGINAL ZONE B-CELL LYMPHOMA (MALT TYPE)
     Dosage: UNK
     Route: 065

REACTIONS (6)
  - Product use in unapproved indication [Unknown]
  - Autoimmune neutropenia [Unknown]
  - Treatment failure [Unknown]
  - Hepatitis E [Unknown]
  - Adverse event [Unknown]
  - Drug resistance [Unknown]

NARRATIVE: CASE EVENT DATE: 2016
